FAERS Safety Report 7499300-0 (Version None)
Quarter: 2011Q2

REPORT INFORMATION
  Report Type: 
  Country: None (occurrence: None)
  Receive Date: 20110524
  Receipt Date: 20110215
  Transmission Date: 20111010
  Serious: No
  Sender: FDA-Public Use
  Company Number: A0914490A

PATIENT
  Age: 66 Year
  Sex: Male

DRUGS (1)
  1. ARZERRA [Suspect]
     Dosage: 300MG SINGLE DOSE
     Route: 042
     Dates: start: 20110215, end: 20110215

REACTIONS (2)
  - RASH PRURITIC [None]
  - URTICARIA [None]
